FAERS Safety Report 9924925 (Version 1)
Quarter: 2014Q1

REPORT INFORMATION
  Report Type: Spontaneous
  Country: GB (occurrence: None)
  Receive Date: 20140221
  Receipt Date: 20140221
  Transmission Date: 20141002
  Serious: Yes (Other)
  Sender: FDA-Public Use
  Company Number: 2014P1001524

PATIENT
  Sex: Female

DRUGS (1)
  1. ZANTAC [Suspect]
     Dates: start: 2013

REACTIONS (2)
  - Stevens-Johnson syndrome [None]
  - Hypersensitivity [None]
